FAERS Safety Report 17666046 (Version 1)
Quarter: 2020Q2

REPORT INFORMATION
  Report Type: Spontaneous
  Country: CA (occurrence: CA)
  Receive Date: 20200414
  Receipt Date: 20200414
  Transmission Date: 20200713
  Serious: Yes (Disabling, Other)
  Sender: FDA-Public Use
  Company Number: CA-B.I. PHARMACEUTICALS,INC./RIDGEFIELD-2020-BI-019394

PATIENT
  Age: 53 Year
  Sex: Female
  Weight: 95 kg

DRUGS (4)
  1. METOPROLOL. [Suspect]
     Active Substance: METOPROLOL
     Indication: HYPERTENSION
     Route: 065
  2. MICARDIS [Suspect]
     Active Substance: TELMISARTAN
     Indication: HYPERTENSION
     Route: 065
  3. TELMISARTAN. [Suspect]
     Active Substance: TELMISARTAN
     Indication: HYPERTENSION
     Route: 065
  4. CALCITRIOL. [Concomitant]
     Active Substance: CALCITRIOL
     Indication: PRODUCT USED FOR UNKNOWN INDICATION
     Route: 065

REACTIONS (26)
  - Breath odour [Unknown]
  - Muscle rigidity [Unknown]
  - Pleuritic pain [Unknown]
  - Blood parathyroid hormone increased [Unknown]
  - Back pain [Unknown]
  - Gingival disorder [Unknown]
  - Musculoskeletal pain [Unknown]
  - Tooth disorder [Unknown]
  - Tooth fracture [Unknown]
  - Dyspepsia [Unknown]
  - Muscle spasms [Unknown]
  - Ocular hyperaemia [Unknown]
  - Cardiac flutter [Unknown]
  - Heart rate irregular [Unknown]
  - Periarthritis [Unknown]
  - Musculoskeletal stiffness [Unknown]
  - Reaction to excipient [Unknown]
  - Glomerular filtration rate decreased [Unknown]
  - Blood urea increased [Unknown]
  - Gastritis [Unknown]
  - Peripheral arterial occlusive disease [Unknown]
  - Sciatica [Unknown]
  - White blood cell count increased [Unknown]
  - Hyperaesthesia teeth [Unknown]
  - Blood creatine phosphokinase MB increased [Unknown]
  - Blood uric acid increased [Unknown]
